FAERS Safety Report 9538074 (Version 3)
Quarter: 2013Q4

REPORT INFORMATION
  Report Type: Spontaneous
  Country: IT (occurrence: IT)
  Receive Date: 20130920
  Receipt Date: 20131203
  Transmission Date: 20140711
  Serious: Yes (Other)
  Sender: FDA-Public Use
  Company Number: IT-RANBAXY-2013RR-73192

PATIENT
  Age: 48 Year
  Sex: Female

DRUGS (1)
  1. AMOXICILLIN [Suspect]
     Indication: OROPHARYNGEAL PAIN
     Dosage: 1 G, COMPLETE
     Route: 048
     Dates: start: 20130829, end: 20130829

REACTIONS (3)
  - Pharyngeal oedema [Recovered/Resolved]
  - Tongue oedema [Recovered/Resolved]
  - Urticaria [Recovered/Resolved]
